FAERS Safety Report 18903345 (Version 2)
Quarter: 2021Q1

REPORT INFORMATION
  Report Type: Report from Study
  Country: None (occurrence: US)
  Receive Date: 20210216
  Receipt Date: 20210330
  Transmission Date: 20210420
  Serious: Yes (Other)
  Sender: FDA-Public Use
  Company Number: US-ABBVIE-21K-163-3776459-00

PATIENT
  Sex: Male
  Weight: 87.17 kg

DRUGS (2)
  1. RINVOQ [Suspect]
     Active Substance: UPADACITINIB
     Route: 048
     Dates: start: 20210301
  2. RINVOQ [Suspect]
     Active Substance: UPADACITINIB
     Indication: RHEUMATOID ARTHRITIS
     Route: 048
     Dates: end: 20210122

REACTIONS (3)
  - Arthralgia [Unknown]
  - Red blood cell sedimentation rate increased [Unknown]
  - Parathyroid gland operation [Recovering/Resolving]

NARRATIVE: CASE EVENT DATE: 2021
